FAERS Safety Report 7551850-4 (Version None)
Quarter: 2011Q2

REPORT INFORMATION
  Report Type: 
  Country: None (occurrence: None)
  Receive Date: 20110616
  Receipt Date: 20110607
  Transmission Date: 20111010
  Serious: Yes (Other)
  Sender: FDA-Public Use
  Company Number: US-ASTRAZENECA-2011SE06049

PATIENT
  Age: 48 Year
  Sex: Male
  Weight: 72.6 kg

DRUGS (1)
  1. CRESTOR [Suspect]
     Indication: HYPERLIPIDAEMIA
     Route: 048
     Dates: start: 20110407

REACTIONS (1)
  - HIV INFECTION [None]
